FAERS Safety Report 11189571 (Version 1)
Quarter: 2015Q2

REPORT INFORMATION
  Report Type: Spontaneous
  Country: TN (occurrence: TN)
  Receive Date: 20150615
  Receipt Date: 20150615
  Transmission Date: 20150821
  Serious: Yes (Other)
  Sender: FDA-Public Use
  Company Number: TN-GE HEALTHCARE MEDICAL DIAGNOSTICS-OMPQ-PR-1506S-0907

PATIENT
  Age: 69 Year
  Sex: Female

DRUGS (3)
  1. OMNIPAQUE [Suspect]
     Active Substance: IOHEXOL
     Indication: PRODUCT USED FOR UNKNOWN INDICATION
     Dosage: DOSE NOT REPORTED
     Dates: start: 20150601, end: 20150601
  2. OMNIPAQUE [Suspect]
     Active Substance: IOHEXOL
     Indication: DIAGNOSTIC PROCEDURE
  3. AMIODARONE [Concomitant]
     Active Substance: AMIODARONE

REACTIONS (1)
  - Hemiplegia [Unknown]

NARRATIVE: CASE EVENT DATE: 20150601
